FAERS Safety Report 11850829 (Version 5)
Quarter: 2016Q1

REPORT INFORMATION
  Report Type: Report from Study
  Country: KR (occurrence: KR)
  Receive Date: 20151218
  Receipt Date: 20160121
  Transmission Date: 20160526
  Serious: Yes (Hospitalization)
  Sender: FDA-Public Use
  Company Number: KR-JNJFOC-20151119586

PATIENT
  Age: 31 Year
  Sex: Female
  Weight: 51 kg

DRUGS (25)
  1. ASACOL [Suspect]
     Active Substance: MESALAMINE
     Indication: COLITIS ULCERATIVE
     Route: 065
     Dates: start: 20150120, end: 20151117
  2. COLAZAL [Suspect]
     Active Substance: BALSALAZIDE DISODIUM
     Indication: COLITIS ULCERATIVE
     Route: 048
     Dates: start: 20151108, end: 20151116
  3. TYLENOL [Suspect]
     Active Substance: ACETAMINOPHEN
     Indication: COLITIS ULCERATIVE
     Route: 048
     Dates: start: 20151108, end: 20151108
  4. MVH [Suspect]
     Active Substance: VITAMINS
     Indication: NUTRITIONAL SUPPLEMENTATION
     Route: 042
     Dates: start: 20151209, end: 20151209
  5. FOLIC ACID. [Concomitant]
     Active Substance: FOLIC ACID
     Indication: COLITIS ULCERATIVE
     Route: 048
     Dates: start: 20151116
  6. SOLONDO [Suspect]
     Active Substance: PREDNISOLONE
     Indication: COLITIS ULCERATIVE
     Route: 048
     Dates: start: 20151112, end: 20151112
  7. CORTISOLU [Suspect]
     Active Substance: HYDROCORTISONE SODIUM SUCCINATE
     Indication: COLITIS ULCERATIVE
     Route: 042
     Dates: start: 20151126, end: 20151126
  8. PHENIRAMINE [Suspect]
     Active Substance: PHENIRAMINE
     Indication: COLITIS ULCERATIVE
     Route: 042
     Dates: start: 20151126, end: 20151126
  9. FOIPAN [Suspect]
     Active Substance: CAMOSTAT MESYLATE
     Indication: PRODUCT USED FOR UNKNOWN INDICATION
     Route: 048
     Dates: start: 20150319, end: 20150723
  10. TYLENOL [Suspect]
     Active Substance: ACETAMINOPHEN
     Indication: COLITIS ULCERATIVE
     Route: 048
     Dates: start: 20151126, end: 20151126
  11. SMOFKABIVEN [Suspect]
     Active Substance: UNSPECIFIED INGREDIENT
     Indication: COLITIS ULCERATIVE
     Route: 042
     Dates: start: 20151112, end: 20151113
  12. REMICADE [Suspect]
     Active Substance: INFLIXIMAB
     Indication: COLITIS ULCERATIVE
     Route: 042
     Dates: start: 20151112, end: 20151112
  13. ASACOL [Suspect]
     Active Substance: MESALAMINE
     Indication: COLITIS ULCERATIVE
     Route: 048
     Dates: start: 20150527, end: 20151107
  14. PANTOLINE [Suspect]
     Active Substance: PANTOPRAZOLE SODIUM
     Indication: PRODUCT USED FOR UNKNOWN INDICATION
     Route: 048
     Dates: start: 20150319, end: 20150611
  15. OMP [Suspect]
     Active Substance: OMEPRAZOLE
     Indication: COLITIS ULCERATIVE
     Route: 048
     Dates: start: 20151108, end: 20151116
  16. ULISTIN [Suspect]
     Active Substance: ULINASTATIN
     Indication: COLITIS ULCERATIVE
     Dosage: 50000IU/ ML
     Route: 055
     Dates: start: 20151209
  17. ULISTIN [Suspect]
     Active Substance: ULINASTATIN
     Indication: COLITIS ULCERATIVE
     Dosage: 100000IU/2 ML
     Route: 055
     Dates: start: 20151209
  18. SOLONDO [Suspect]
     Active Substance: PREDNISOLONE
     Indication: COLITIS ULCERATIVE
     Route: 048
     Dates: start: 20150331, end: 20150423
  19. SOLONDO [Suspect]
     Active Substance: PREDNISOLONE
     Indication: COLITIS ULCERATIVE
     Route: 048
     Dates: start: 20151126, end: 20151126
  20. REMICADE [Suspect]
     Active Substance: INFLIXIMAB
     Indication: COLITIS ULCERATIVE
     Route: 042
     Dates: start: 20151126, end: 20151126
  21. ASACOL [Suspect]
     Active Substance: MESALAMINE
     Indication: COLITIS ULCERATIVE
     Route: 048
     Dates: start: 20150120, end: 20150526
  22. SMOFKABIVEN [Suspect]
     Active Substance: UNSPECIFIED INGREDIENT
     Indication: NUTRITIONAL SUPPLEMENTATION
     Route: 042
     Dates: start: 20151112, end: 20151113
  23. SMOFKABIVEN [Suspect]
     Active Substance: UNSPECIFIED INGREDIENT
     Indication: NUTRITIONAL SUPPLEMENTATION
     Route: 042
     Dates: start: 20151209, end: 20151209
  24. SMOFKABIVEN [Suspect]
     Active Substance: UNSPECIFIED INGREDIENT
     Indication: COLITIS ULCERATIVE
     Route: 042
     Dates: start: 20151209, end: 20151209
  25. FEROBA [Suspect]
     Active Substance: FERROUS SULFATE\PROTEASE
     Indication: COLITIS ULCERATIVE
     Route: 048
     Dates: start: 20151116

REACTIONS (3)
  - Exposure during pregnancy [Unknown]
  - Vomiting [Recovered/Resolved]
  - Abdominal pain upper [Recovered/Resolved]

NARRATIVE: CASE EVENT DATE: 2015
